FAERS Safety Report 6023424-8 (Version None)
Quarter: 2008Q4

REPORT INFORMATION
  Report Type: 
  Country: None (occurrence: None)
  Receive Date: 20081230
  Receipt Date: 20081226
  Transmission Date: 20090506
  Serious: Yes (Hospitalization)
  Sender: FDA-Public Use
  Company Number: JP-BRISTOL-MYERS SQUIBB COMPANY-14100929

PATIENT
  Age: 73 Year
  Sex: Male

DRUGS (17)
  1. ABATACEPT [Suspect]
     Indication: RHEUMATOID ARTHRITIS
     Dosage: LAST DOSE RECEIVED ON 27-FEB-2008
     Route: 041
     Dates: start: 20070912, end: 20080227
  2. PREDONINE [Suspect]
     Indication: RHEUMATOID ARTHRITIS
     Route: 048
     Dates: start: 20050119
  3. RHEUMATREX [Concomitant]
     Indication: RHEUMATOID ARTHRITIS
     Route: 048
     Dates: start: 20061209, end: 20080302
  4. OSTELUC [Concomitant]
     Indication: RHEUMATOID ARTHRITIS
     Route: 048
     Dates: start: 20070913
  5. MOHRUS [Concomitant]
     Indication: RHEUMATOID ARTHRITIS
     Dates: start: 20070912
  6. CYTOTEC [Concomitant]
     Indication: GASTRITIS
     Route: 048
  7. FOLIAMIN [Concomitant]
     Route: 048
     Dates: end: 20080304
  8. ACINON [Concomitant]
     Indication: GASTRITIS
     Route: 048
  9. MUCOSTA [Concomitant]
     Indication: GASTRITIS
     Route: 048
  10. FERRUM [Concomitant]
     Indication: ANAEMIA
     Route: 048
     Dates: start: 20071107
  11. MUCODYNE [Concomitant]
     Indication: NASAL CONGESTION
     Route: 048
     Dates: start: 20071024
  12. FLONASE [Concomitant]
     Indication: NASAL CONGESTION
     Dates: start: 20071024
  13. HARNAL [Concomitant]
     Indication: BENIGN PROSTATIC HYPERPLASIA
     Route: 048
     Dates: start: 20071120
  14. CLARITHROMYCIN [Concomitant]
     Indication: INFECTION PROPHYLAXIS
     Route: 048
     Dates: start: 20071126
  15. BONALON [Concomitant]
     Indication: FRACTURE
     Route: 048
     Dates: start: 20071130
  16. BUP-4 [Concomitant]
     Indication: BENIGN PROSTATIC HYPERPLASIA
     Route: 048
     Dates: start: 20071120
  17. ISODINE [Concomitant]
     Indication: INFECTION PROPHYLAXIS
     Route: 002
     Dates: start: 20070912

REACTIONS (1)
  - OSTEOMYELITIS [None]
